FAERS Safety Report 22304181 (Version 1)
Quarter: 2023Q2

REPORT INFORMATION
  Report Type: Report from Study
  Country: US (occurrence: US)
  Receive Date: 20230510
  Receipt Date: 20230510
  Transmission Date: 20230722
  Serious: Yes (Death, Other)
  Sender: FDA-Public Use
  Company Number: US-SUN PHARMACEUTICAL INDUSTRIES LTD-2023R1-387904

PATIENT
  Sex: Male

DRUGS (2)
  1. ABIRATERONE [Suspect]
     Active Substance: ABIRATERONE
     Indication: Hormone-dependent prostate cancer
     Dosage: 1000 MILLIGRAM, QD,ON AN EMPTY STOMACH
     Route: 065
  2. PREDNISONE [Suspect]
     Active Substance: PREDNISONE
     Indication: Hormone-dependent prostate cancer
     Dosage: UNK
     Route: 065

REACTIONS (1)
  - Disease progression [Fatal]
